FAERS Safety Report 17335901 (Version 1)
Quarter: 2020Q1

REPORT INFORMATION
  Report Type: Spontaneous
  Country: DE (occurrence: DE)
  Receive Date: 20200129
  Receipt Date: 20200129
  Transmission Date: 20200409
  Serious: Yes (Hospitalization, Disabling)
  Sender: FDA-Public Use
  Company Number: DE-AUROBINDO-AUR-APL-2013-09730

PATIENT
  Age: 58 Year
  Sex: Female
  Weight: 71 kg

DRUGS (3)
  1. ASS 100 [Concomitant]
     Active Substance: ASPIRIN
     Indication: OPTIC ISCHAEMIC NEUROPATHY
     Dosage: UNK UNK,UNK,
     Route: 065
     Dates: start: 2010
  2. TRENTAL [Concomitant]
     Active Substance: PENTOXIFYLLINE
     Indication: OPTIC ISCHAEMIC NEUROPATHY
     Dosage: 500 MG,UNK,
     Route: 065
     Dates: start: 2010
  3. CLOPIDOGREL [Suspect]
     Active Substance: CLOPIDOGREL BISULFATE
     Dosage: 75 MG,ONCE A DAY,
     Route: 065
     Dates: start: 2010

REACTIONS (1)
  - Hypersensitivity pneumonitis [Not Recovered/Not Resolved]

NARRATIVE: CASE EVENT DATE: 20130225
